FAERS Safety Report 22742688 (Version 8)
Quarter: 2024Q2

REPORT INFORMATION
  Report Type: Report from Study
  Country: US (occurrence: US)
  Receive Date: 20230724
  Receipt Date: 20240611
  Transmission Date: 20240716
  Serious: Yes (Hospitalization, Other)
  Sender: FDA-Public Use
  Company Number: US-TAKEDA-2023TUS071644

PATIENT
  Age: 20 Year
  Sex: Male

DRUGS (5)
  1. RECOMBINATE [Suspect]
     Active Substance: ANTIHEMOPHILIC FACTOR, HUMAN RECOMBINANT
     Indication: Haemorrhage
     Dosage: 2500 INTERNATIONAL UNIT, Q12H
     Route: 042
  2. RECOMBINATE [Suspect]
     Active Substance: ANTIHEMOPHILIC FACTOR, HUMAN RECOMBINANT
     Indication: Prophylaxis
     Dosage: 2735 INTERNATIONAL UNIT, Q12H
     Route: 042
  3. RECOMBINATE [Suspect]
     Active Substance: ANTIHEMOPHILIC FACTOR, HUMAN RECOMBINANT
     Dosage: 2735 INTERNATIONAL UNIT, QOD
     Route: 042
  4. RECOMBINATE [Suspect]
     Active Substance: ANTIHEMOPHILIC FACTOR, HUMAN RECOMBINANT
     Dosage: 2680 INTERNATIONAL UNIT, QOD
     Route: 042
  5. RECOMBINATE [Suspect]
     Active Substance: ANTIHEMOPHILIC FACTOR, HUMAN RECOMBINANT
     Dosage: 2680 INTERNATIONAL UNIT
     Route: 065

REACTIONS (16)
  - Haemarthrosis [Recovered/Resolved]
  - Muscle haemorrhage [Unknown]
  - Spontaneous haemorrhage [Unknown]
  - Haemorrhage [Unknown]
  - Infection [Unknown]
  - Accident [Unknown]
  - Dysphagia [Unknown]
  - Limb discomfort [Unknown]
  - Arthropathy [Unknown]
  - Lymphadenopathy [Unknown]
  - Pain in extremity [Not Recovered/Not Resolved]
  - Chest pain [Unknown]
  - Dyspnoea [Unknown]
  - Extra dose administered [Unknown]
  - Product use issue [Unknown]
  - Product dose omission issue [Unknown]

NARRATIVE: CASE EVENT DATE: 20200516
